FAERS Safety Report 16311789 (Version 1)
Quarter: 2019Q2

REPORT INFORMATION
  Report Type: Spontaneous
  Country: GR (occurrence: GR)
  Receive Date: 20190514
  Receipt Date: 20190514
  Transmission Date: 20190711
  Serious: Yes (Death, Other)
  Sender: FDA-Public Use
  Company Number: PHHY2019GR109630

PATIENT
  Age: 71 Year
  Sex: Female

DRUGS (1)
  1. IMATINIB. [Suspect]
     Active Substance: IMATINIB MESYLATE
     Indication: SYSTEMIC MASTOCYTOSIS
     Route: 065

REACTIONS (7)
  - Hepatomegaly [Fatal]
  - Hepatic failure [Fatal]
  - Ascites [Fatal]
  - Product use in unapproved indication [Unknown]
  - Drug ineffective [Unknown]
  - Transfusion related complication [Unknown]
  - Liver function test abnormal [Unknown]
